FAERS Safety Report 14651597 (Version 3)
Quarter: 2018Q4

REPORT INFORMATION
  Report Type: Spontaneous
  Country: JP (occurrence: JP)
  Receive Date: 20180317
  Receipt Date: 20181203
  Transmission Date: 20190204
  Serious: Yes (Hospitalization, Other)
  Sender: FDA-Public Use
  Company Number: JP-AMGEN-JPNSP2018023457

PATIENT
  Age: 52 Year
  Sex: Female

DRUGS (16)
  1. CRESTOR [Concomitant]
     Active Substance: ROSUVASTATIN CALCIUM
     Indication: HYPERLIPIDAEMIA
     Dosage: 2.5 MG, QD
     Route: 048
     Dates: start: 20170210
  2. ACETAMINOFEN [Concomitant]
     Active Substance: ACETAMINOPHEN
     Indication: PYREXIA
     Dosage: UNK
     Route: 065
  3. ACETAMINOFEN [Concomitant]
     Active Substance: ACETAMINOPHEN
     Indication: OEDEMA PERIPHERAL
  4. LOXOPROFEN [Concomitant]
     Active Substance: LOXOPROFEN
     Indication: OEDEMA PERIPHERAL
     Dosage: UNK
     Route: 065
  5. LOXOPROFEN [Concomitant]
     Active Substance: LOXOPROFEN
     Indication: PAIN IN EXTREMITY
  6. GRANISETRON [Concomitant]
     Active Substance: GRANISETRON
     Indication: PRODUCT USED FOR UNKNOWN INDICATION
     Dosage: 3 MG
     Route: 041
     Dates: start: 20171227, end: 20171227
  7. DEXART [Concomitant]
     Active Substance: DEXAMETHASONE SODIUM PHOSPHATE
     Indication: PRODUCT USED FOR UNKNOWN INDICATION
     Dosage: 6.6 MG
     Route: 041
     Dates: start: 20171227, end: 20171227
  8. URSODEOXYCHOLIC ACID [Concomitant]
     Active Substance: URSODIOL
     Indication: PROPHYLAXIS
     Dosage: 100 MG, TID
     Route: 048
     Dates: start: 20141112
  9. TAKECAB [Concomitant]
     Active Substance: VONOPRAZAN FUMURATE
     Indication: PROPHYLAXIS
     Dosage: 10 MG, QD
     Route: 048
     Dates: start: 20170322
  10. G-LASTA [Suspect]
     Active Substance: PEGFILGRASTIM
     Indication: PRODUCT USED FOR UNKNOWN INDICATION
     Dosage: 3.6 MG, UNK
     Route: 058
     Dates: start: 20171228, end: 20171228
  11. METHYCOBAL [Concomitant]
     Active Substance: METHYLCOBALAMIN
     Indication: HYPOAESTHESIA
     Dosage: 500 UG, TID
     Route: 048
     Dates: start: 20160826
  12. TEPRENONE [Concomitant]
     Active Substance: TEPRENONE
     Indication: PROPHYLAXIS
     Dosage: 50 MG, TID
     Route: 048
     Dates: start: 20141014
  13. CYRAMZA [Concomitant]
     Active Substance: RAMUCIRUMAB
     Indication: PRODUCT USED FOR UNKNOWN INDICATION
     Dosage: 450 MG
     Route: 041
     Dates: start: 20171227, end: 20171227
  14. DOCETAXEL. [Concomitant]
     Active Substance: DOCETAXEL
     Indication: PRODUCT USED FOR UNKNOWN INDICATION
     Dosage: 65 MG
     Route: 041
     Dates: start: 20171227, end: 20171227
  15. ACETAMINOFEN [Concomitant]
     Active Substance: ACETAMINOPHEN
     Indication: PAIN IN EXTREMITY
  16. LOXOPROFEN [Concomitant]
     Active Substance: LOXOPROFEN
     Indication: PYREXIA
     Dosage: UNK
     Route: 065

REACTIONS (5)
  - Catheter site erythema [Recovered/Resolved]
  - Vasculitis [Recovered/Resolved]
  - Pyrexia [Recovered/Resolved]
  - Pain in extremity [Recovered/Resolved]
  - Oedema peripheral [Recovered/Resolved]

NARRATIVE: CASE EVENT DATE: 20180105
